FAERS Safety Report 25961789 (Version 1)
Quarter: 2025Q4

REPORT INFORMATION
  Report Type: Spontaneous
  Country: US (occurrence: US)
  Receive Date: 20251027
  Receipt Date: 20251027
  Transmission Date: 20260118
  Serious: Yes (Hospitalization)
  Sender: MYLAN
  Company Number: US-MYLANLABS-2025M1084835

PATIENT
  Sex: Female
  Weight: 143.3 kg

DRUGS (1)
  1. NEURONTIN [Suspect]
     Active Substance: GABAPENTIN
     Indication: Pain
     Dosage: 600 MILLIGRAM, BID (2 CAPSULES, TWICE DAILY)
     Dates: start: 20220811, end: 20230825

REACTIONS (3)
  - Back pain [Unknown]
  - Arthralgia [Unknown]
  - Off label use [Unknown]
